FAERS Safety Report 9300879 (Version 2)
Quarter: 2013Q3

REPORT INFORMATION
  Report Type: Report from Study
  Country: JP (occurrence: JP)
  Receive Date: 20130521
  Receipt Date: 20130712
  Transmission Date: 20140515
  Serious: Yes (Death, Life-Threatening)
  Sender: FDA-Public Use
  Company Number: JP-009507513-1305JPN011794

PATIENT
  Age: 78 Year
  Sex: Female
  Weight: 35.8 kg

DRUGS (6)
  1. REFLEX [Suspect]
     Indication: DEPRESSION
     Dosage: UNK
     Route: 048
     Dates: start: 20110921, end: 20120317
  2. LORMETAZEPAM [Concomitant]
     Indication: INSOMNIA
     Dosage: 1 MG, QD
     Route: 048
     Dates: start: 20110921, end: 20120318
  3. MAGNESIUM OXIDE [Concomitant]
     Indication: CONSTIPATION
     Dosage: 2 G, UNK
     Route: 048
     Dates: end: 20120318
  4. SODIUM FERROUS CITRATE [Concomitant]
     Indication: IRON DEFICIENCY ANAEMIA
     Dosage: UNK
     Route: 048
     Dates: start: 20120224, end: 20120318
  5. CILASTATIN SODIUM (+) IMIPENEM [Concomitant]
     Indication: PNEUMONIA
     Dosage: UNK
     Dates: start: 20120316, end: 20120321
  6. OXYGEN [Concomitant]
     Indication: PNEUMONIA
     Dosage: UNK
     Dates: start: 20120411, end: 20120421

REACTIONS (2)
  - Pneumonia [Fatal]
  - Iron deficiency anaemia [Not Recovered/Not Resolved]
